FAERS Safety Report 17268356 (Version 8)
Quarter: 2025Q1

REPORT INFORMATION
  Report Type: Spontaneous
  Country: US (occurrence: US)
  Receive Date: 20200114
  Receipt Date: 20250116
  Transmission Date: 20250408
  Serious: Yes (Other)
  Sender: PFIZER
  Company Number: US-PFIZER INC-2020014601

PATIENT
  Age: 85 Year
  Sex: Male

DRUGS (4)
  1. VYNDAMAX [Suspect]
     Active Substance: TAFAMIDIS
     Indication: Amyloidosis
     Dosage: ONE 61 MG CAPSULE ONCE DAILY
     Route: 048
  2. VYNDAMAX [Suspect]
     Active Substance: TAFAMIDIS
     Indication: Cardiac failure congestive
  3. VYNDAMAX [Suspect]
     Active Substance: TAFAMIDIS
     Indication: Atrioventricular block
  4. ELIQUIS [Concomitant]
     Active Substance: APIXABAN
     Indication: Atrial fibrillation
     Dosage: 5MG TAKE 1 TABLET TWICE DAILY
     Route: 048

REACTIONS (6)
  - Neuropathy peripheral [Unknown]
  - Blindness [Unknown]
  - Cone-rod dystrophy [Unknown]
  - Gait disturbance [Unknown]
  - Balance disorder [Unknown]
  - Auditory disorder [Unknown]
